FAERS Safety Report 8183250-0 (Version None)
Quarter: 2012Q1

REPORT INFORMATION
  Report Type: 
  Country: None (occurrence: None)
  Receive Date: 20120305
  Receipt Date: 20120223
  Transmission Date: 20120608
  Serious: Yes (Hospitalization, Other)
  Sender: FDA-Public Use
  Company Number: BR-SANOFI-AVENTIS-2012SA012447

PATIENT
  Age: 67 Year
  Sex: Male
  Weight: 83 kg

DRUGS (4)
  1. NOVOLIN 70/30 [Concomitant]
     Indication: TYPE 2 DIABETES MELLITUS
     Route: 058
     Dates: start: 20020101
  2. LANTUS [Suspect]
     Indication: TYPE 2 DIABETES MELLITUS
     Route: 058
     Dates: start: 20000101
  3. OPTIPEN [Concomitant]
     Indication: DEVICE THERAPY
     Route: 065
  4. ALL OTHER THERAPEUTIC PRODUCTS [Concomitant]
     Indication: TYPE 2 DIABETES MELLITUS
     Route: 058
     Dates: start: 20070101

REACTIONS (10)
  - INFARCTION [None]
  - SLUGGISHNESS [None]
  - ASTHENIA [None]
  - HYPOGLYCAEMIA [None]
  - INTERVERTEBRAL DISC PROTRUSION [None]
  - PROSTATE CANCER [None]
  - PAIN [None]
  - FATIGUE [None]
  - HYPERGLYCAEMIA [None]
  - TREMOR [None]
